FAERS Safety Report 9049452 (Version 1)
Quarter: 2013Q1

REPORT INFORMATION
  Report Type: Report from Study
  Country: US (occurrence: US)
  Receive Date: 20130205
  Receipt Date: 20130205
  Transmission Date: 20140127
  Serious: Yes (Life-Threatening, Hospitalization)
  Sender: FDA-Public Use
  Company Number: US-GLAXOSMITHKLINE-A0998545A

PATIENT
  Age: 14 Year
  Sex: Male

DRUGS (4)
  1. ELTROMBOPAG [Suspect]
     Indication: THROMBOCYTOPENIA
     Route: 048
     Dates: start: 20121018
  2. ATG [Suspect]
     Indication: APLASTIC ANAEMIA
     Dates: start: 20121005, end: 20121010
  3. PREDNISONE [Concomitant]
     Indication: APLASTIC ANAEMIA
     Dosage: 40MG PER DAY
  4. PAIN MEDICATION [Concomitant]

REACTIONS (5)
  - Haematochezia [Recovered/Resolved]
  - Gastrointestinal haemorrhage [Recovered/Resolved]
  - Infection [Recovering/Resolving]
  - Haematoma [Unknown]
  - Abdominal wall haematoma [Not Recovered/Not Resolved]
